FAERS Safety Report 6034099-6 (Version None)
Quarter: 2009Q1

REPORT INFORMATION
  Report Type: 
  Country: None (occurrence: None)
  Receive Date: 20090108
  Receipt Date: 20090108
  Transmission Date: 20090719
  Serious: Yes (Hospitalization)
  Sender: FDA-Public Use
  Company Number: None

PATIENT
  Age: 69 Year
  Sex: Male
  Weight: 58.5 kg

DRUGS (2)
  1. ATENOLOL [Suspect]
     Indication: HYPERTENSION
  2. TERAZOSIN HCL [Suspect]
     Indication: HYPERTENSION
     Dates: end: 20081230

REACTIONS (2)
  - DIZZINESS [None]
  - FALL [None]
